FAERS Safety Report 9743942 (Version 1)
Quarter: 2013Q4

REPORT INFORMATION
  Report Type: Spontaneous
  Country: US (occurrence: US)
  Receive Date: 20131210
  Receipt Date: 20131210
  Transmission Date: 20140711
  Serious: No
  Sender: FDA-Public Use
  Company Number: US-BIOGENIDEC-2013BI097963

PATIENT
  Age: 56 Year
  Sex: Female

DRUGS (11)
  1. TECFIDERA [Suspect]
     Indication: MULTIPLE SCLEROSIS
     Route: 048
     Dates: start: 201310
  2. TECFIDERA [Suspect]
     Indication: MULTIPLE SCLEROSIS
     Route: 048
  3. CYMBALTA [Concomitant]
  4. MORPHINE SULFATE IR [Concomitant]
  5. LYRICA [Concomitant]
  6. FENTANYL CITRATE OTFC [Concomitant]
  7. FENTANYL [Concomitant]
  8. ADVAIR HFA [Concomitant]
  9. SPIRIVA [Concomitant]
  10. ESTRADIOL [Concomitant]
  11. COLACE-T [Concomitant]

REACTIONS (2)
  - Flushing [Unknown]
  - Pruritus [Unknown]
